FAERS Safety Report 7009299-9 (Version None)
Quarter: 2010Q3

REPORT INFORMATION
  Report Type: 
  Country: None (occurrence: None)
  Receive Date: 20100923
  Receipt Date: 20100910
  Transmission Date: 20110219
  Serious: Yes (Hospitalization)
  Sender: FDA-Public Use
  Company Number: US-SANOFI-AVENTIS-2010SA056805

PATIENT
  Sex: Male
  Weight: 82.78 kg

DRUGS (2)
  1. ARAVA [Suspect]
     Indication: RHEUMATOID ARTHRITIS
     Route: 048
     Dates: start: 20031030, end: 20031121
  2. ARAVA [Suspect]
     Route: 065

REACTIONS (3)
  - BLOOD ALKALINE PHOSPHATASE INCREASED [None]
  - JAUNDICE [None]
  - TRANSAMINASES INCREASED [None]
